FAERS Safety Report 7270156-4 (Version None)
Quarter: 2011Q1

REPORT INFORMATION
  Report Type: 
  Country: None (occurrence: None)
  Receive Date: 20110125
  Receipt Date: 20110125
  Transmission Date: 20110831
  Serious: Yes (Life-Threatening)
  Sender: FDA-Public Use
  Company Number: None

PATIENT
  Age: 52 Year
  Sex: Female
  Weight: 53.5244 kg

DRUGS (1)
  1. ESTRING [Suspect]
     Indication: VULVOVAGINAL DRYNESS
     Dosage: RING INSERT VAG
     Route: 067
     Dates: start: 20110114, end: 20110121

REACTIONS (2)
  - LYMPHADENOPATHY [None]
  - ABDOMINAL PAIN LOWER [None]
